FAERS Safety Report 19450274 (Version 1)
Quarter: 2021Q2

REPORT INFORMATION
  Report Type: Spontaneous
  Country: JP (occurrence: JP)
  Receive Date: 20210622
  Receipt Date: 20210622
  Transmission Date: 20210717
  Serious: Yes (Hospitalization, Other)
  Sender: FDA-Public Use
  Company Number: JP-ORGANON-O2106JPN000266J

PATIENT
  Sex: Female

DRUGS (2)
  1. NU?LOTAN TABLETS 50MG [Suspect]
     Active Substance: LOSARTAN
     Dosage: 0.5 DOSAGE FORM
     Route: 048
  2. NU?LOTAN TABLETS 50MG [Suspect]
     Active Substance: LOSARTAN
     Indication: NEPHROPROTECTIVE THERAPY
     Dosage: UNK
     Route: 048

REACTIONS (9)
  - Adverse event [Unknown]
  - Oedema [Recovering/Resolving]
  - Product use in unapproved indication [Unknown]
  - Dizziness [Recovering/Resolving]
  - IgA nephropathy [Recovering/Resolving]
  - Blood pressure decreased [Unknown]
  - Drug ineffective [Unknown]
  - Laryngitis [Unknown]
  - Blood pressure increased [Unknown]
